FAERS Safety Report 21121431 (Version 2)
Quarter: 2022Q3

REPORT INFORMATION
  Report Type: Spontaneous
  Country: VN (occurrence: VN)
  Receive Date: 20220722
  Receipt Date: 20220722
  Transmission Date: 20221027
  Serious: Yes (Death, Other)
  Sender: FDA-Public Use
  Company Number: VN-GUERBET-VN-20220011

PATIENT
  Age: 56 Year
  Sex: Male
  Weight: 61 kg

DRUGS (2)
  1. LIPIODOL [Suspect]
     Active Substance: ETHIODIZED OIL
     Indication: Portal vein embolisation
     Dosage: LIPIODOL IN MIXTURE WITH N-BUTYL-2-CYANOACRYLATE 6 ML AT RATIO OF 1:3
     Route: 013
  2. UNSPECIFIED INGREDIENT [Suspect]
     Active Substance: UNSPECIFIED INGREDIENT
     Indication: Portal vein embolisation
     Dosage: LIPIODOL IN MIXTURE WITH N-BUTYL-2-CYANOACRYLATE 6 ML AT RATIO OF 1:3
     Route: 013

REACTIONS (4)
  - Subcapsular hepatic haematoma [Fatal]
  - Hepatic necrosis [Fatal]
  - Hepatic failure [Fatal]
  - Product use in unapproved indication [Unknown]
